FAERS Safety Report 9563599 (Version 1)
Quarter: 2013Q1

REPORT INFORMATION
  Report Type: Spontaneous
  Country: US (occurrence: None)
  Receive Date: 20121218
  Receipt Date: 20121218
  Transmission Date: 20140127
  Serious: Yes (Other)
  Sender: FDA-Public Use
  Company Number: PHEH2012US005181

PATIENT
  Age: 63 Year
  Sex: Male

DRUGS (1)
  1. ZOMETA (ZOLEDRONATE) SOLUTION FOR INJECTION [Suspect]
     Route: 042
     Dates: start: 20100630, end: 20120229

REACTIONS (1)
  - Cystitis [None]
